FAERS Safety Report 22630944 (Version 1)
Quarter: 2023Q2

REPORT INFORMATION
  Report Type: Spontaneous
  Country: US (occurrence: US)
  Receive Date: 20230622
  Receipt Date: 20230622
  Transmission Date: 20230721
  Serious: No
  Sender: FDA-Public Use
  Company Number: US-009507513-2306USA002324

PATIENT
  Sex: Male

DRUGS (5)
  1. INTEGRILIN [Suspect]
     Active Substance: EPTIFIBATIDE
     Indication: Basilar artery aneurysm
     Dosage: UNK
     Route: 042
  2. INTEGRILIN [Suspect]
     Active Substance: EPTIFIBATIDE
     Indication: Basilar artery thrombosis
     Dosage: UNK
     Route: 013
  3. INTEGRILIN [Suspect]
     Active Substance: EPTIFIBATIDE
     Indication: Basilar artery occlusion
  4. ASPIRIN [Concomitant]
     Active Substance: ASPIRIN
     Indication: Basilar artery aneurysm
  5. ASPIRIN [Concomitant]
     Active Substance: ASPIRIN
     Indication: Basilar artery thrombosis

REACTIONS (1)
  - Product use in unapproved indication [Unknown]
